FAERS Safety Report 19708558 (Version 1)
Quarter: 2021Q3

REPORT INFORMATION
  Report Type: Spontaneous
  Country: US (occurrence: US)
  Receive Date: 20210817
  Receipt Date: 20210817
  Transmission Date: 20211014
  Serious: Yes (Hospitalization)
  Sender: FDA-Public Use
  Company Number: US-AMNEAL PHARMACEUTICALS-2021-AMRX-03195

PATIENT
  Sex: Female

DRUGS (1)
  1. VIGABATRIN. [Suspect]
     Active Substance: VIGABATRIN
     Indication: EPILEPSY
     Dosage: 170 MILLIGRAM (3.4 ML), 2 /DAY
     Route: 048
     Dates: start: 2021

REACTIONS (1)
  - Adverse event [Unknown]

NARRATIVE: CASE EVENT DATE: 2021
